FAERS Safety Report 14365763 (Version 7)
Quarter: 2020Q3

REPORT INFORMATION
  Report Type: Report from Study
  Country: US (occurrence: US)
  Receive Date: 20180109
  Receipt Date: 20200731
  Transmission Date: 20201102
  Serious: Yes (Other)
  Sender: FDA-Public Use
  Company Number: PHEH2018US000824

PATIENT
  Age: 65 Year
  Sex: Female

DRUGS (3)
  1. GILENYA [Suspect]
     Active Substance: FINGOLIMOD HYDROCHLORIDE
     Indication: MULTIPLE SCLEROSIS RELAPSE
     Dosage: 0.5 MG, QD
     Route: 048
     Dates: start: 20171230
  2. GILENYA [Suspect]
     Active Substance: FINGOLIMOD HYDROCHLORIDE
     Dosage: 0.5 MG, QD
     Route: 048
     Dates: start: 20200719
  3. GILENYA [Suspect]
     Active Substance: FINGOLIMOD HYDROCHLORIDE
     Dosage: 0.5 MG, QD
     Route: 048
     Dates: start: 20180101, end: 20180930

REACTIONS (20)
  - Somnolence [Unknown]
  - Feeling abnormal [Unknown]
  - Visual impairment [Unknown]
  - Nausea [Not Recovered/Not Resolved]
  - Narcolepsy [Unknown]
  - Dizziness [Unknown]
  - Weight decreased [Unknown]
  - Dysphagia [Unknown]
  - Optic neuritis [Unknown]
  - Multiple sclerosis relapse [Unknown]
  - Alopecia [Not Recovered/Not Resolved]
  - Ear pain [Unknown]
  - Cataplexy [Unknown]
  - Hair colour changes [Not Recovered/Not Resolved]
  - Arthralgia [Unknown]
  - White blood cell count decreased [Unknown]
  - Pain in extremity [Unknown]
  - Fatigue [Unknown]
  - Headache [Not Recovered/Not Resolved]
  - Eye pain [Unknown]

NARRATIVE: CASE EVENT DATE: 20180117
